FAERS Safety Report 24440742 (Version 2)
Quarter: 2024Q4

REPORT INFORMATION
  Report Type: Report from Study
  Country: CL (occurrence: CL)
  Receive Date: 20241016
  Receipt Date: 20241017
  Transmission Date: 20250115
  Serious: No
  Sender: ROCHE
  Company Number: CL-ROCHE-3233649

PATIENT
  Age: 12 Year
  Sex: Male
  Weight: 63.5 kg

DRUGS (1)
  1. HEMLIBRA [Suspect]
     Active Substance: EMICIZUMAB-KXWH
     Indication: Factor VIII deficiency
     Dosage: 165 MG
     Route: 065
     Dates: start: 202109

REACTIONS (21)
  - Haemorrhage [Unknown]
  - Epistaxis [Recovered/Resolved]
  - Gingival bleeding [Recovered/Resolved]
  - Blood urine present [Recovered/Resolved]
  - Underdose [Unknown]
  - Blood pressure decreased [Recovered/Resolved]
  - Oxygen saturation abnormal [Recovered/Resolved]
  - Injection site erythema [Recovered/Resolved]
  - Head injury [Recovered/Resolved]
  - Nausea [Recovered/Resolved]
  - Vomiting [Recovered/Resolved]
  - Arthralgia [Unknown]
  - Back pain [Unknown]
  - Sinusitis bacterial [Recovered/Resolved]
  - Acne [Unknown]
  - Mobility decreased [Unknown]
  - Synovial cyst [Unknown]
  - Dysmetria [Unknown]
  - Joint space narrowing [Unknown]
  - Bone cyst [Unknown]
  - Pelvic misalignment [Unknown]

NARRATIVE: CASE EVENT DATE: 20230101
